FAERS Safety Report 10370807 (Version 1)
Quarter: 2014Q3

REPORT INFORMATION
  Report Type: Spontaneous
  Country: US (occurrence: None)
  Receive Date: 20140807
  Receipt Date: 20140807
  Transmission Date: 20150326
  Serious: Yes (Hospitalization)
  Sender: FDA-Public Use
  Company Number: None

PATIENT
  Age: 45 Year
  Sex: Female
  Weight: 109 kg

DRUGS (13)
  1. PROTONIX [Concomitant]
     Active Substance: PANTOPRAZOLE SODIUM
  2. PREDNISONE. [Concomitant]
     Active Substance: PREDNISONE
  3. XARELTO [Suspect]
     Active Substance: RIVAROXABAN
  4. PRAVASTATIN [Concomitant]
     Active Substance: PRAVASTATIN\PRAVASTATIN SODIUM
  5. FLUOXETINE [Concomitant]
     Active Substance: FLUOXETINE\FLUOXETINE HYDROCHLORIDE
  6. ALBUTEROL HFA [Concomitant]
     Active Substance: ALBUTEROL SULFATE
  7. HYDROCODONE [Concomitant]
     Active Substance: HYDROCODONE
  8. TEMAZEPAM. [Concomitant]
     Active Substance: TEMAZEPAM
  9. CYCLOBENZAPRINE [Concomitant]
     Active Substance: CYCLOBENZAPRINE
  10. COREG [Concomitant]
     Active Substance: CARVEDILOL
  11. ASPIRIN. [Concomitant]
     Active Substance: ASPIRIN
  12. SPIRONOLACTONE. [Concomitant]
     Active Substance: SPIRONOLACTONE
  13. XARELTO [Concomitant]
     Active Substance: RIVAROXABAN

REACTIONS (7)
  - Chest pain [None]
  - Dizziness [None]
  - Thrombectomy [None]
  - Myalgia [None]
  - Stomatitis [None]
  - Skin lesion [None]
  - Pulmonary embolism [None]

NARRATIVE: CASE EVENT DATE: 20140804
